FAERS Safety Report 4404809-X (Version None)
Quarter: 2004Q3

REPORT INFORMATION
  Report Type: 
  Country: None (occurrence: None)
  Receive Date: 20040715
  Receipt Date: 20040708
  Transmission Date: 20050211
  Serious: Yes (Death)
  Sender: FDA-Public Use
  Company Number: US-JNJFOC-20040702401

PATIENT
  Age: 81 Year
  Sex: Female

DRUGS (1)
  1. RISPERDAL [Suspect]
     Dosage: 0.5 MG, IN 1 DAY, ORAL
     Route: 048

REACTIONS (1)
  - DEATH [None]
